FAERS Safety Report 8308024-9 (Version None)
Quarter: 2012Q2

REPORT INFORMATION
  Report Type: 
  Country: None (occurrence: None)
  Receive Date: 20120424
  Receipt Date: 20120409
  Transmission Date: 20120825
  Serious: Yes (Hospitalization)
  Sender: FDA-Public Use
  Company Number: JP-WATSON-2012-06408

PATIENT
  Age: 73 Year
  Sex: Female

DRUGS (1)
  1. GEMCITABINE [Suspect]
     Indication: PANCREATIC CARCINOMA
     Dosage: 800 MG/M2 ON DAY 1, 8, 15
     Route: 065

REACTIONS (2)
  - CHOLESTATIC LIVER INJURY [None]
  - HEPATIC FAILURE [None]
